FAERS Safety Report 5504410-0 (Version None)
Quarter: 2007Q4

REPORT INFORMATION
  Report Type: 
  Country: None (occurrence: None)
  Receive Date: 20071101
  Receipt Date: 20071023
  Transmission Date: 20080405
  Serious: Yes (Death, Hospitalization)
  Sender: FDA-Public Use
  Company Number: JP-PFIZER INC-2007077559

PATIENT
  Age: 81 Year
  Sex: Male

DRUGS (6)
  1. DIFLUCAN [Suspect]
     Indication: LICHENIFICATION
     Dosage: DAILY DOSE:100MG
     Route: 048
     Dates: start: 20070825, end: 20070909
  2. DIFLUCAN [Suspect]
     Indication: MOUTH ULCERATION
  3. PREDONINE [Concomitant]
  4. CEPHALOSPORINS AND RELATED SUBSTANCES [Concomitant]
  5. BETA-LACTAM ANTIBACTERIALS, PENICILLINS [Concomitant]
  6. AMINOGLYCOSIDE ANTIBACTERIALS [Concomitant]

REACTIONS (1)
  - PNEUMOCYSTIS JIROVECI PNEUMONIA [None]
